FAERS Safety Report 8965785 (Version 1)
Quarter: 2012Q4

REPORT INFORMATION
  Report Type: Spontaneous
  Country: PL (occurrence: None)
  Receive Date: 20121204
  Receipt Date: 20121204
  Transmission Date: 20130627
  Serious: Yes (Life-Threatening)
  Sender: FDA-Public Use
  Company Number: 2012-21217

PATIENT
  Age: 20 Year
  Sex: Male

DRUGS (7)
  1. PARACETAMOL (UNKNOWN) (PARACETAMOL) UNK, UNKUNK [Suspect]
     Indication: DRUG USE FOR UNKNOWN INDICATION
     Route: 048
     Dates: start: 20121026, end: 20121106
  2. CLEXANE (ENOXAPARIN SODIUM) [Suspect]
     Route: 058
     Dates: start: 20121026, end: 20121106
  3. KETONAL [Suspect]
     Route: 042
     Dates: start: 20121026, end: 20121106
  4. SULFAMETHOXAZOLE\TRIMETHOPRIM [Suspect]
     Route: 042
     Dates: start: 20121029, end: 20121107
  5. CONTROLOC [Suspect]
     Route: 042
     Dates: start: 20121026
  6. TARSIME (CEFUROXIME SODIUM) [Concomitant]
  7. ENTUS MAX (AMBROXOL HYDROCHLORIDE) [Concomitant]

REACTIONS (1)
  - Thrombocytopenia [None]
